FAERS Safety Report 11734710 (Version 13)
Quarter: 2016Q2

REPORT INFORMATION
  Report Type: Spontaneous
  Country: US (occurrence: US)
  Receive Date: 20151113
  Receipt Date: 20160627
  Transmission Date: 20160815
  Serious: Yes (Other)
  Sender: FDA-Public Use
  Company Number: US-PFIZER INC-2015192970

PATIENT
  Age: 62 Year
  Sex: Male
  Weight: 71 kg

DRUGS (22)
  1. SUTENT [Suspect]
     Active Substance: SUNITINIB MALATE
     Dosage: 25 MG, CYCLIC (25 MG DAILY FOR 28 DAYS ON/ 14 DAYS OFF)
     Route: 048
     Dates: start: 20151125
  2. COREG [Concomitant]
     Active Substance: CARVEDILOL
     Indication: BLOOD PRESSURE ABNORMAL
     Dosage: 25 MG, 2X/DAY
     Route: 048
  3. FLUDOCORT [Concomitant]
     Indication: BLOOD PRESSURE FLUCTUATION
     Dosage: 0.5 MG, EVERY DAY
     Route: 048
  4. NASACORT [Concomitant]
     Active Substance: TRIAMCINOLONE ACETONIDE
     Dosage: UNK
  5. AMLODIPINE [Concomitant]
     Active Substance: AMLODIPINE BESYLATE
     Dosage: UNK
  6. SUTENT [Suspect]
     Active Substance: SUNITINIB MALATE
     Dosage: 25 MG, CYCLIC (28 DAYS ON/14 DAYS OFF)
     Route: 048
     Dates: start: 20160127, end: 20160208
  7. FLUDOCORT [Concomitant]
     Dosage: 0.5 MG, UNK (EVERY THIRD DAY)
     Route: 048
  8. ZOFRAN [Concomitant]
     Active Substance: ONDANSETRON HYDROCHLORIDE
     Dosage: UNK
  9. SUTENT [Suspect]
     Active Substance: SUNITINIB MALATE
     Indication: METASTATIC RENAL CELL CARCINOMA
     Dosage: 37.5 MG, CYCLIC (28 DAYS ON/14 DAYS OFF)
     Route: 048
     Dates: start: 20141222, end: 20151118
  10. NYSTATIN. [Concomitant]
     Active Substance: NYSTATIN
     Dosage: UNK
  11. SINGULAIR [Concomitant]
     Active Substance: MONTELUKAST SODIUM
     Dosage: 10 MG, 1X/DAY
     Route: 048
  12. NIASPAN [Concomitant]
     Active Substance: NIACIN
     Indication: BLOOD CHOLESTEROL ABNORMAL
     Dosage: 750 MG, 1X/DAY
     Route: 048
  13. XANAX [Concomitant]
     Active Substance: ALPRAZOLAM
     Dosage: UNK
  14. FLUDROCORTISONE [Concomitant]
     Active Substance: FLUDROCORTISONE
     Dosage: UNK
  15. ATIVAN [Concomitant]
     Active Substance: LORAZEPAM
     Dosage: UNK
  16. NORVASC [Concomitant]
     Active Substance: AMLODIPINE BESYLATE
     Indication: BLOOD PRESSURE ABNORMAL
     Dosage: 2.5 MG, 1X/DAY
     Route: 048
  17. VITAMIN B12 AMINO [Concomitant]
  18. HYDROCORTISONE. [Concomitant]
     Active Substance: HYDROCORTISONE
     Indication: ADRENAL SUPPRESSION
     Dosage: 1X/DAY (15MG IN THE MORNING, 10MG AT NIGHT)
     Route: 048
  19. LIPITOR [Concomitant]
     Active Substance: ATORVASTATIN CALCIUM
     Indication: MYOCARDIAL INFARCTION
     Dosage: 10 MG, 1X/DAY
     Route: 048
  20. PROMETHAZINE [Concomitant]
     Active Substance: PROMETHAZINE\PROMETHAZINE HYDROCHLORIDE
     Dosage: UNK
  21. SUTENT [Suspect]
     Active Substance: SUNITINIB MALATE
     Dosage: 25 MG, CYCLIC (25 MG DAILY FOR 28 DAYS ON/ 14 DAYS OFF)
     Route: 048
     Dates: start: 20160106
  22. LISINOPRIL. [Concomitant]
     Active Substance: LISINOPRIL
     Indication: BLOOD PRESSURE ABNORMAL
     Dosage: 40 MG, 1X/DAY
     Route: 048

REACTIONS (31)
  - Diarrhoea [Recovering/Resolving]
  - Disease progression [Unknown]
  - Lip exfoliation [Unknown]
  - Decreased appetite [Recovered/Resolved]
  - Weight decreased [Not Recovered/Not Resolved]
  - Sinusitis [Recovered/Resolved]
  - Fatigue [Unknown]
  - Contusion [Unknown]
  - Anaemia [Unknown]
  - Vitamin B12 decreased [Unknown]
  - Nausea [Not Recovered/Not Resolved]
  - Oral pain [Not Recovered/Not Resolved]
  - Renal cancer metastatic [Unknown]
  - Blood creatinine increased [Unknown]
  - Adrenal insufficiency [Unknown]
  - Dysgeusia [Recovering/Resolving]
  - Lip blister [Unknown]
  - Pruritus [Unknown]
  - Back pain [Unknown]
  - Eating disorder [Unknown]
  - Fluid intake reduced [Unknown]
  - Sunburn [Unknown]
  - Oral mucosal blistering [Recovering/Resolving]
  - Limb discomfort [Unknown]
  - Platelet count decreased [Unknown]
  - Monocyte count decreased [Unknown]
  - Blister [Unknown]
  - Dry skin [Unknown]
  - Oral discomfort [Recovering/Resolving]
  - Ageusia [Unknown]
  - Rash [Unknown]

NARRATIVE: CASE EVENT DATE: 20150411
